FAERS Safety Report 6075541-4 (Version None)
Quarter: 2009Q1

REPORT INFORMATION
  Report Type: 
  Country: None (occurrence: None)
  Receive Date: 20090212
  Receipt Date: 20090205
  Transmission Date: 20090719
  Serious: Yes (Other)
  Sender: FDA-Public Use
  Company Number: US-WYE-H08127209

PATIENT
  Sex: Female

DRUGS (3)
  1. ADVIL LIQUI-GELS [Suspect]
     Indication: MYALGIA
     Dosage: 2 TABLETS X 1 AT BED TIME
     Route: 048
     Dates: start: 20090114, end: 20090114
  2. LISINOPRIL [Concomitant]
     Dosage: UNKNOWN
     Route: 048
  3. NEXIUM [Concomitant]
     Dosage: UNKNOWN
     Route: 048

REACTIONS (4)
  - FEELING JITTERY [None]
  - RASH ERYTHEMATOUS [None]
  - RASH PRURITIC [None]
  - URTICARIA [None]
